FAERS Safety Report 6289115-3 (Version None)
Quarter: 2009Q3

REPORT INFORMATION
  Report Type: 
  Country: None (occurrence: None)
  Receive Date: 20090728
  Receipt Date: 20090720
  Transmission Date: 20100115
  Serious: Yes (Hospitalization)
  Sender: FDA-Public Use
  Company Number: US015460

PATIENT
  Age: 56 Year
  Sex: Male
  Weight: 124.7392 kg

DRUGS (15)
  1. ACTIQ [Suspect]
     Indication: BACK PAIN
     Dosage: (800  MCG, UP TO 12 TIMES DAILY PRN), BU
     Route: 002
     Dates: start: 20020701
  2. OXYCONTIN [Concomitant]
  3. SEROQUEL [Concomitant]
  4. ZOLOFT [Concomitant]
  5. LEXAPRO [Concomitant]
  6. PERCOCET [Concomitant]
  7. ACCUPRIL [Concomitant]
  8. VERAPAMIL [Concomitant]
  9. ACIPHEX [Concomitant]
  10. TORSEMIDE [Concomitant]
  11. POTASSIUM (POTASSIUM) [Concomitant]
  12. PEXEVA (PAROXETINE MESILATE)(TABLETS) [Concomitant]
  13. VALIUM [Concomitant]
  14. FLOMAX (MORNIFLUMATE) [Concomitant]
  15. OPANA [Concomitant]

REACTIONS (10)
  - ARTHRALGIA [None]
  - BLOOD GLUCOSE INCREASED [None]
  - BONE PAIN [None]
  - CONDITION AGGRAVATED [None]
  - DEPENDENCE [None]
  - GAIT DISTURBANCE [None]
  - MYALGIA [None]
  - NAUSEA [None]
  - PAROSMIA [None]
  - TINNITUS [None]
